FAERS Safety Report 19243446 (Version 1)
Quarter: 2021Q2

REPORT INFORMATION
  Report Type: Spontaneous
  Country: IN (occurrence: IN)
  Receive Date: 20210511
  Receipt Date: 20210511
  Transmission Date: 20210717
  Serious: Yes (Death)
  Sender: FDA-Public Use
  Company Number: IN-PFIZER INC-2018384765

PATIENT
  Age: 65 Year
  Sex: Female

DRUGS (4)
  1. SHELCAL [CALCIUM CARBONATE;COLECALCIFEROL] [Concomitant]
     Dosage: 500 MG, 2X/DAY (1?0?1) FOR 6 MONTHS
  2. LETROZ [Concomitant]
     Dosage: 2.5 MG, 1X/DAY (1?0?0)
  3. PALBACE [Suspect]
     Active Substance: PALBOCICLIB
     Dosage: 125 MG, ONCE A DAY (21/28 DAYS)
     Route: 048
     Dates: start: 20180830
  4. PALBACE [Suspect]
     Active Substance: PALBOCICLIB
     Indication: BREAST CANCER METASTATIC
     Dosage: 125 MG, ONCE A DAY (21/28 DAYS)
     Route: 048
     Dates: start: 20180703

REACTIONS (2)
  - Back pain [Recovered/Resolved]
  - Death [Fatal]
